FAERS Safety Report 4970432-1 (Version None)
Quarter: 2006Q2

REPORT INFORMATION
  Report Type: 
  Country: None (occurrence: None)
  Receive Date: 20060406
  Receipt Date: 20060326
  Transmission Date: 20061013
  Serious: Yes (Other)
  Sender: FDA-Public Use
  Company Number: 200511240BWH

PATIENT
  Age: 57 Year
  Sex: Male

DRUGS (10)
  1. LEVITRA [Suspect]
     Indication: ERECTILE DYSFUNCTION
     Dosage: 20 MG, PRN, ORAL
     Route: 048
     Dates: start: 20041201, end: 20050501
  2. WELLBUTRIN XL [Concomitant]
  3. CYMBALTA [Concomitant]
  4. TOPAMAX [Concomitant]
  5. SEROQUEL [Concomitant]
  6. VICODIN [Concomitant]
  7. AMBIEN [Concomitant]
  8. FLONASE [Concomitant]
  9. ATROVENT [Concomitant]
  10. TYLENOL (CAPLET) [Concomitant]

REACTIONS (4)
  - CHEST DISCOMFORT [None]
  - DYSPNOEA EXERTIONAL [None]
  - MIGRAINE [None]
  - VENTRICULAR TACHYCARDIA [None]
